FAERS Safety Report 23527138 (Version 2)
Quarter: 2024Q1

REPORT INFORMATION
  Report Type: Report from Study
  Country: CA (occurrence: CA)
  Receive Date: 20240215
  Receipt Date: 20240329
  Transmission Date: 20240409
  Serious: Yes (Hospitalization, Other)
  Sender: FDA-Public Use
  Company Number: CA-SAMSUNG BIOEPIS-SB-2024-00949

PATIENT
  Age: 48 Year
  Sex: Male

DRUGS (1)
  1. RENFLEXIS [Suspect]
     Active Substance: INFLIXIMAB-ABDA
     Indication: Psoriatic arthropathy
     Route: 042
     Dates: start: 20200331

REACTIONS (9)
  - COVID-19 [Recovering/Resolving]
  - Thrombosis [Unknown]
  - Renal impairment [Unknown]
  - Malaise [Unknown]
  - Fatigue [Unknown]
  - Respiratory syncytial virus infection [Unknown]
  - Laryngitis [Unknown]
  - Inappropriate schedule of product administration [Unknown]
  - Product use issue [Unknown]

NARRATIVE: CASE EVENT DATE: 20231125
